FAERS Safety Report 11317763 (Version 3)
Quarter: 2015Q4

REPORT INFORMATION
  Report Type: Report from Study
  Country: AR (occurrence: AR)
  Receive Date: 20150728
  Receipt Date: 20151128
  Transmission Date: 20160304
  Serious: Yes (Death, Hospitalization)
  Sender: FDA-Public Use
  Company Number: PHHY2015AR090521

PATIENT
  Age: 80 Year
  Sex: Female

DRUGS (4)
  1. AMIODARONE HYDROCHLORIDE. [Concomitant]
     Active Substance: AMIODARONE HYDROCHLORIDE
     Indication: PRODUCT USED FOR UNKNOWN INDICATION
     Dosage: 200 MG, QD
     Route: 065
  2. EXJADE [Suspect]
     Active Substance: DEFERASIROX
     Indication: MYELODYSPLASTIC SYNDROME
     Dosage: 1 DF, QD
     Route: 065
     Dates: start: 20141201, end: 20150901
  3. LOSARTAN. [Concomitant]
     Active Substance: LOSARTAN
     Indication: HYPERTENSION
     Route: 065
  4. CLOPIDOGREL [Concomitant]
     Active Substance: CLOPIDOGREL BISULFATE
     Indication: PRODUCT USED FOR UNKNOWN INDICATION
     Dosage: 75 MG, QD
     Route: 065

REACTIONS (8)
  - Asthenia [Recovered/Resolved]
  - Bronchitis [Recovered/Resolved]
  - Fatigue [Recovered/Resolved]
  - Weight decreased [Recovering/Resolving]
  - Pleural effusion [Recovered/Resolved]
  - Ageusia [Recovered/Resolved]
  - Death [Fatal]
  - Pneumonia [Unknown]

NARRATIVE: CASE EVENT DATE: 201504
